FAERS Safety Report 9652151 (Version 1)
Quarter: 2013Q4

REPORT INFORMATION
  Report Type: Spontaneous
  Country: GB (occurrence: None)
  Receive Date: 20131025
  Receipt Date: 20131025
  Transmission Date: 20140711
  Serious: Yes (Hospitalization)
  Sender: FDA-Public Use
  Company Number: 2013-1681

PATIENT
  Age: 63 Year
  Sex: Female

DRUGS (7)
  1. CARFILZOMIB [Suspect]
     Indication: PLASMA CELL MYELOMA
     Dosage: DAYS 1, 2
     Route: 042
     Dates: start: 20130819, end: 20130820
  2. DEXAMETHASONE [Suspect]
     Indication: PLASMA CELL MYELOMA
     Dosage: DAYS 1, 2, 8, 9, 15, 16, 22, 23, EVERY 28 DAYS
     Route: 048
     Dates: start: 20130816, end: 20130903
  3. ZORAMORPH (MORPHINE SULFATE PENTAHYDRATE) (MORPHINE SULFATE PENTAHYDRATE) [Concomitant]
  4. ACICLOVIR (ACICLOVIR) (ACICLOVIR) [Concomitant]
  5. LANSOPRAZOLE (LANSOPRAZOLE) [Concomitant]
  6. NYSTATION (NYSTATION) [Concomitant]
  7. OMEPRAZOLE (OMEPRAZOLE) [Concomitant]

REACTIONS (3)
  - Palpitations [None]
  - Sinus tachycardia [None]
  - Supraventricular extrasystoles [None]
